FAERS Safety Report 8966812 (Version 1)
Quarter: 2012Q4

REPORT INFORMATION
  Report Type: 
  Country: NL (occurrence: NL)
  Receive Date: 20121217
  Receipt Date: 20121217
  Transmission Date: 20130627
  Serious: Yes (Death, Hospitalization)
  Sender: FDA-Public Use
  Company Number: PHHY2012NL106892

PATIENT
  Age: 57 Year
  Sex: Male
  Weight: 79 kg

DRUGS (4)
  1. ZOMETA [Suspect]
     Indication: METASTASES TO BONE
     Dosage: 4 mg/100 ml, 1x per 28 days
     Route: 042
     Dates: start: 2011
  2. ZOMETA [Suspect]
     Dosage: 4 mg/100 ml, 1x per 28 days
     Route: 042
     Dates: start: 20121004
  3. PREDNISOLONE [Concomitant]
     Dosage: 5 mg, BID
     Dates: start: 20120424
  4. CALCIUM D3 [Concomitant]
     Dosage: UNK UKN, UNK
     Dates: start: 20120518

REACTIONS (3)
  - Prostate cancer [Fatal]
  - Malignant neoplasm progression [Fatal]
  - Malaise [Fatal]
